FAERS Safety Report 5102801-3 (Version None)
Quarter: 2006Q3

REPORT INFORMATION
  Report Type: 
  Country: None (occurrence: None)
  Receive Date: 20060907
  Receipt Date: 20060828
  Transmission Date: 20061208
  Serious: Yes (Death)
  Sender: FDA-Public Use
  Company Number: 2006105174

PATIENT

DRUGS (2)
  1. LIPITOR [Suspect]
     Indication: LIPIDS INCREASED
     Dosage: ORAL
     Route: 048
  2. RISPERDAL [Suspect]
     Indication: DRUG USE FOR UNKNOWN INDICATION

REACTIONS (3)
  - DRUG INTERACTION [None]
  - EPILEPSY [None]
  - LIPID METABOLISM DISORDER [None]
